FAERS Safety Report 14338031 (Version 2)
Quarter: 2018Q1

REPORT INFORMATION
  Report Type: Spontaneous
  Country: CA (occurrence: CA)
  Receive Date: 20171229
  Receipt Date: 20180119
  Transmission Date: 20180509
  Serious: Yes (Other)
  Sender: FDA-Public Use
  Company Number: CA-PFIZER INC-2017551093

PATIENT
  Age: 55 Year
  Sex: Female

DRUGS (5)
  1. VITAMIN D [Concomitant]
     Active Substance: CHOLECALCIFEROL
     Dosage: 1 DF, DAILY
     Route: 048
  2. SPIRONOLACTONE. [Suspect]
     Active Substance: SPIRONOLACTONE
     Dosage: 2 TABLETS, DAILY
     Route: 048
     Dates: start: 2016
  3. PENTASA [Suspect]
     Active Substance: MESALAMINE
     Dosage: 4 DF, 2X/DAY (4 TABS AM AND 4 TABS HS)
     Route: 048
     Dates: start: 1995
  4. PREDNISONE. [Concomitant]
     Active Substance: PREDNISONE
     Dosage: TAPERING DOSE (3RD TIME TAPERING THIS YEAR)
     Route: 048
     Dates: start: 20171214
  5. PREDNISONE. [Concomitant]
     Active Substance: PREDNISONE
     Dosage: UNK
     Dates: end: 20171214

REACTIONS (2)
  - Haematochezia [Unknown]
  - Thyroid disorder [Unknown]
